FAERS Safety Report 24274283 (Version 1)
Quarter: 2024Q3

REPORT INFORMATION
  Report Type: Spontaneous
  Country: US (occurrence: US)
  Receive Date: 20240902
  Receipt Date: 20240902
  Transmission Date: 20241016
  Serious: No
  Sender: ASTELLAS
  Company Number: US-ASTELLAS-2024US006571

PATIENT
  Age: 81 Year
  Sex: Female

DRUGS (1)
  1. ENFORTUMAB VEDOTIN [Suspect]
     Active Substance: ENFORTUMAB VEDOTIN
     Indication: Transitional cell carcinoma metastatic
     Dosage: UNK UNK, UNKNOWN FREQ.
     Route: 042
     Dates: start: 20210414, end: 20220629

REACTIONS (3)
  - Brain fog [Recovering/Resolving]
  - Skin weeping [Recovering/Resolving]
  - Rash [Recovering/Resolving]
